FAERS Safety Report 7564908-0 (Version None)
Quarter: 2011Q2

REPORT INFORMATION
  Report Type: 
  Country: None (occurrence: None)
  Receive Date: 20110622
  Receipt Date: 20110321
  Transmission Date: 20111010
  Serious: Yes (Hospitalization)
  Sender: FDA-Public Use
  Company Number: US-MYLANLABS-2011S1003007

PATIENT
  Age: 14 Year
  Sex: Male
  Weight: 47.17 kg

DRUGS (4)
  1. CLOZAPINE [Suspect]
     Route: 048
     Dates: start: 20110207, end: 20110210
  2. CLOZAPINE [Suspect]
     Indication: SCHIZOPHRENIA
     Route: 048
     Dates: start: 20110127, end: 20110207
  3. CLOZAPINE [Suspect]
     Route: 048
     Dates: start: 20110207, end: 20110210
  4. CLOZAPINE [Suspect]
     Route: 048
     Dates: start: 20110210, end: 20110216

REACTIONS (4)
  - TACHYCARDIA [None]
  - MALAISE [None]
  - CHEST PAIN [None]
  - PYREXIA [None]
